FAERS Safety Report 23268565 (Version 2)
Quarter: 2023Q4

REPORT INFORMATION
  Report Type: Spontaneous
  Country: JP (occurrence: JP)
  Receive Date: 20231206
  Receipt Date: 20231214
  Transmission Date: 20240110
  Serious: Yes (Hospitalization, Other)
  Sender: FDA-Public Use
  Company Number: JP-MLMSERVICE-20231122-4679843-1

PATIENT
  Age: 17 Year
  Sex: Female
  Weight: 75.3 kg

DRUGS (3)
  1. ACETAMINOPHEN [Suspect]
     Active Substance: ACETAMINOPHEN
     Indication: Pyrexia
     Dosage: 500 MG PRN, UP TO THREE TIMES PER DAY
     Route: 065
     Dates: start: 201709, end: 2017
  2. ACETAMINOPHEN\CAFFEINE\PROMETHAZINE\SALICYLAMIDE [Suspect]
     Active Substance: ACETAMINOPHEN\CAFFEINE\PROMETHAZINE\SALICYLAMIDE
     Indication: Pyrexia
     Route: 065
     Dates: start: 201709
  3. CEFDITOREN PIVOXIL [Concomitant]
     Active Substance: CEFDITOREN PIVOXIL
     Indication: Antibiotic therapy
     Dosage: 300 MG QD
     Route: 065
     Dates: start: 201709

REACTIONS (2)
  - Drug-induced liver injury [Recovered/Resolved]
  - Hepatitis acute [Recovered/Resolved]

NARRATIVE: CASE EVENT DATE: 20170101
